FAERS Safety Report 7513658-5 (Version None)
Quarter: 2011Q2

REPORT INFORMATION
  Report Type: 
  Country: None (occurrence: None)
  Receive Date: 20110531
  Receipt Date: 20110214
  Transmission Date: 20111010
  Serious: Yes (Other)
  Sender: FDA-Public Use
  Company Number: US-BAYER-2011-016519

PATIENT
  Sex: Female
  Weight: 95 kg

DRUGS (64)
  1. DIGOXIN [Concomitant]
  2. MORPHINE SULFATE [Concomitant]
  3. CEPHALEXIN [Concomitant]
  4. NIFEDIPINE [Concomitant]
  5. BENZONATATE [Concomitant]
  6. AMBIEN [Concomitant]
  7. OMNISCAN [Suspect]
     Indication: IMAGING PROCEDURE
     Dosage: UNK UNK, ONCE
     Dates: start: 20050420, end: 20050420
  8. GLUCOPHAGE [Concomitant]
  9. FENTANYL [Concomitant]
  10. LANTUS [Concomitant]
  11. CARVEDILOL [Concomitant]
  12. ENOXAPARIN [Concomitant]
  13. CEFZIL [Concomitant]
  14. CEFUROXIME [Concomitant]
  15. MICROLET [Concomitant]
  16. MEPROZINE [Concomitant]
  17. PIOGLITAZONE [Concomitant]
  18. GADOLINIUM IN UNSPECIFIED DRUG [Concomitant]
     Indication: NUCLEAR MAGNETIC RESONANCE IMAGING
     Dosage: UNK UNK, ONCE
     Dates: start: 20050817, end: 20050817
  19. GADOLINIUM IN UNSPECIFIED DRUG [Concomitant]
     Dosage: UNK
     Dates: start: 20060505, end: 20060505
  20. EFFEXOR XR [Concomitant]
  21. TORSEMIDE [Concomitant]
  22. ADVAIR DISKUS 100/50 [Concomitant]
  23. LEVAQUIN [Concomitant]
  24. LUNESTA [Concomitant]
  25. POTASSIUM CHLORIDE [Concomitant]
  26. INSULIN [Concomitant]
  27. OMNISCAN [Suspect]
     Dosage: UNK, ONCE
     Dates: start: 20050818, end: 20050818
  28. OPTIMARK [Suspect]
     Indication: IMAGING PROCEDURE
  29. GLYBURIDE [Concomitant]
  30. PRANDIN [Concomitant]
  31. LASIX [Concomitant]
  32. AMOXICILLIN [Concomitant]
  33. VALSARTAN [Concomitant]
  34. NPH INSULIN [Concomitant]
  35. ALBUTEROL SULFATE AUTOHALER [Concomitant]
  36. MAGNEVIST [Suspect]
     Indication: IMAGING PROCEDURE
  37. ACTOS [Concomitant]
  38. GABAPENTIN [Concomitant]
  39. ETHYL CHLORIDE [Concomitant]
  40. VICODIN [Concomitant]
  41. AMIODARONE HCL [Concomitant]
  42. CEFADROXIL [Concomitant]
  43. NITROFURANTOIN [Concomitant]
  44. TRAMADOL HCL [Concomitant]
  45. CARDIZEM LA [Concomitant]
  46. TIZANIDINE HCL [Concomitant]
  47. XOPENEX [Concomitant]
  48. OMNISCAN [Suspect]
     Dosage: UNK, ONCE
     Dates: start: 20051101, end: 20051101
  49. GADOLINIUM IN UNSPECIFIED DRUG [Concomitant]
     Dosage: UNK
     Dates: start: 20060419, end: 20060419
  50. CLONAZEPAM [Concomitant]
  51. HYDROCODONE BITARTRATE [Concomitant]
  52. SERTRALINE HYDROCHLORIDE [Concomitant]
  53. CEFAZOLIN [Concomitant]
  54. FLAGYL [Concomitant]
  55. PROMETHAZINE [Concomitant]
  56. HYDROCODONE/GUAIFENESIN [Concomitant]
  57. FLUCONAZOLE [Concomitant]
  58. SUCRALFATE [Concomitant]
  59. OMNISCAN [Suspect]
     Dosage: UNK, ONCE
     Dates: start: 20051220, end: 20051220
  60. OMNISCAN [Suspect]
     Dosage: UNK
     Dates: start: 20060203, end: 20060203
  61. GADOLINIUM IN UNSPECIFIED DRUG [Concomitant]
     Indication: NUCLEAR MAGNETIC RESONANCE IMAGING BRAIN
     Dosage: UNK, ONCE
     Dates: start: 20060202, end: 20060202
  62. METFORMIN HCL [Concomitant]
  63. OXYCODONE HCL [Concomitant]
  64. TAMOXIFEN CITRATE [Concomitant]

REACTIONS (11)
  - GENERAL PHYSICAL HEALTH DETERIORATION [None]
  - NEPHROGENIC SYSTEMIC FIBROSIS [None]
  - PAIN [None]
  - OEDEMA PERIPHERAL [None]
  - HYPOAESTHESIA [None]
  - SKIN LESION [None]
  - DEFORMITY [None]
  - SWELLING [None]
  - ERYTHEMA [None]
  - PAIN IN EXTREMITY [None]
  - SCAR [None]
